FAERS Safety Report 21671734 (Version 1)
Quarter: 2022Q4

REPORT INFORMATION
  Report Type: Spontaneous
  Country: US (occurrence: US)
  Receive Date: 20221202
  Receipt Date: 20221202
  Transmission Date: 20230113
  Serious: No
  Sender: FDA-Public Use
  Company Number: US-ELI_LILLY_AND_COMPANY-US202211011100

PATIENT
  Age: 46 Year
  Sex: Female

DRUGS (3)
  1. MOUNJARO [Suspect]
     Active Substance: TIRZEPATIDE
     Indication: Product used for unknown indication
     Dosage: 7.5 MG, UNKNOWN
  2. ASPIRIN 1000 [Concomitant]
     Indication: Glucose tolerance impaired
  3. ASPIRIN 1000 [Concomitant]
     Indication: Type 2 diabetes mellitus

REACTIONS (2)
  - Hunger [Unknown]
  - Product dose omission issue [Unknown]

NARRATIVE: CASE EVENT DATE: 20221120
